FAERS Safety Report 24562182 (Version 1)
Quarter: 2024Q4

REPORT INFORMATION
  Report Type: Spontaneous
  Country: GR (occurrence: GR)
  Receive Date: 20241029
  Receipt Date: 20241029
  Transmission Date: 20250115
  Serious: Yes (Life-Threatening)
  Sender: DAIICHI
  Company Number: GR-AstraZeneca-CH-00728708A

PATIENT
  Age: 25 Year
  Sex: Female
  Weight: 9.03 kg

DRUGS (1)
  1. TRASTUZUMAB DERUXTECAN [Suspect]
     Active Substance: TRASTUZUMAB DERUXTECAN
     Indication: Lung neoplasm malignant
     Dosage: UNK
     Route: 042

REACTIONS (1)
  - Pulmonary arterial pressure [Not Recovered/Not Resolved]
